FAERS Safety Report 23424242 (Version 1)
Quarter: 2024Q1

REPORT INFORMATION
  Report Type: Report from Study
  Country: US (occurrence: US)
  Receive Date: 20240120
  Receipt Date: 20240120
  Transmission Date: 20240409
  Serious: Yes (Hospitalization)
  Sender: FDA-Public Use
  Company Number: US-ABBVIE-4731861

PATIENT
  Age: 60 Year
  Sex: Female
  Weight: 82.553 kg

DRUGS (9)
  1. HUMIRA [Suspect]
     Active Substance: ADALIMUMAB
     Indication: Hidradenitis
     Dosage: FORM STRENGTH: 80 MG
     Route: 058
     Dates: start: 202301, end: 20230228
  2. HUMIRA [Suspect]
     Active Substance: ADALIMUMAB
     Dosage: START DATE TEXT: END OF  DEC 2022?FORM STRENGTH: 80 MILLIGRAM
     Route: 058
     Dates: start: 202212
  3. HUMIRA [Suspect]
     Active Substance: ADALIMUMAB
     Route: 058
     Dates: start: 20221109
  4. CARVEDILOL [Concomitant]
     Active Substance: CARVEDILOL
     Indication: Hypertension
  5. METFORMIN [Concomitant]
     Active Substance: METFORMIN HYDROCHLORIDE
     Indication: Diabetes mellitus
  6. OXYCODONE [Concomitant]
     Active Substance: OXYCODONE
     Indication: Spinal disorder
  7. DOXYCYCLINE [Concomitant]
     Active Substance: DOXYCYCLINE
     Indication: Hidradenitis
  8. HYDROCORTISONE [Suspect]
     Active Substance: HYDROCORTISONE
     Indication: Pustule
     Route: 061
     Dates: start: 202303, end: 202303
  9. AMLODIPINE [Concomitant]
     Active Substance: AMLODIPINE BESYLATE
     Indication: Hypertension

REACTIONS (30)
  - Limb mass [Recovering/Resolving]
  - Blister [Not Recovered/Not Resolved]
  - Soft tissue necrosis [Recovering/Resolving]
  - Hidradenitis [Not Recovered/Not Resolved]
  - Impaired work ability [Unknown]
  - Gait disturbance [Recovering/Resolving]
  - Pustule [Recovering/Resolving]
  - Eye swelling [Recovering/Resolving]
  - Dry skin [Recovering/Resolving]
  - Impaired driving ability [Recovering/Resolving]
  - Rash vesicular [Not Recovered/Not Resolved]
  - Madarosis [Not Recovered/Not Resolved]
  - Meibomian gland dysfunction [Recovering/Resolving]
  - Scab [Not Recovered/Not Resolved]
  - Sitting disability [Recovering/Resolving]
  - Peptostreptococcus infection [Not Recovered/Not Resolved]
  - Periorbital swelling [Recovering/Resolving]
  - Alopecia [Not Recovered/Not Resolved]
  - Wound drainage [Recovering/Resolving]
  - Skin fissures [Recovering/Resolving]
  - Eyelid margin crusting [Recovering/Resolving]
  - Peripheral swelling [Unknown]
  - Movement disorder [Unknown]
  - Pain [Not Recovered/Not Resolved]
  - Rash papular [Not Recovered/Not Resolved]
  - Erythema [Not Recovered/Not Resolved]
  - Pruritus [Not Recovered/Not Resolved]
  - Wound [Not Recovered/Not Resolved]
  - Swelling of eyelid [Recovering/Resolving]
  - Rash pruritic [Not Recovered/Not Resolved]

NARRATIVE: CASE EVENT DATE: 20230101
